FAERS Safety Report 15881720 (Version 2)
Quarter: 2019Q1

REPORT INFORMATION
  Report Type: Spontaneous
  Country: US (occurrence: US)
  Receive Date: 20190128
  Receipt Date: 20190225
  Transmission Date: 20190417
  Serious: No
  Sender: FDA-Public Use
  Company Number: US-SA-2019SA020009

PATIENT
  Age: 80 Year
  Sex: Female

DRUGS (1)
  1. PRALUENT [Suspect]
     Active Substance: ALIROCUMAB
     Indication: BLOOD CHOLESTEROL
     Dosage: 75 MG, QOW
     Route: 058
     Dates: start: 20190104

REACTIONS (10)
  - Headache [Unknown]
  - Injection site mass [Recovering/Resolving]
  - Injection site rash [Not Recovered/Not Resolved]
  - Injection site pain [Unknown]
  - Device issue [Unknown]
  - Injection site pain [Unknown]
  - Injection site warmth [Unknown]
  - Injection site erythema [Unknown]
  - Drug hypersensitivity [Unknown]
  - Injection site bruising [Unknown]

NARRATIVE: CASE EVENT DATE: 20190104
